FAERS Safety Report 5025665-5 (Version None)
Quarter: 2006Q2

REPORT INFORMATION
  Report Type: 
  Country: None (occurrence: None)
  Receive Date: 20060614
  Receipt Date: 20060419
  Transmission Date: 20061013
  Serious: Yes (Hospitalization, Other)
  Sender: FDA-Public Use
  Company Number: PHBS2006JP05905

PATIENT
  Age: 64 Year
  Sex: Female

DRUGS (5)
  1. NEORAL [Suspect]
     Indication: INTERSTITIAL LUNG DISEASE
     Dosage: 50 MG/D
     Route: 048
     Dates: start: 20050610
  2. PREDONINE [Concomitant]
     Indication: INTERSTITIAL LUNG DISEASE
     Dosage: 17.5 MG/D
     Route: 048
     Dates: start: 20050610
  3. VFEND [Suspect]
     Dosage: UNK, UNK
     Route: 048
     Dates: start: 20050928
  4. BLOPRESS [Concomitant]
     Dosage: 4 MG/D
     Route: 048
     Dates: start: 20050831
  5. BAKTAR [Concomitant]
     Dosage: 1 DF/D
     Route: 048
     Dates: start: 20050611

REACTIONS (29)
  - ABDOMINAL PAIN UPPER [None]
  - ABSCESS DRAINAGE [None]
  - AGITATION [None]
  - ASTHENIA [None]
  - BLOOD BETA-D-GLUCAN INCREASED [None]
  - BLOOD CHLORIDE DECREASED [None]
  - BLOOD PRESSURE INCREASED [None]
  - BLOOD SODIUM DECREASED [None]
  - BLOOD SODIUM INCREASED [None]
  - CONVULSION [None]
  - DEPRESSED LEVEL OF CONSCIOUSNESS [None]
  - DERMATOMYOSITIS [None]
  - DISEASE PROGRESSION [None]
  - DRUG INTERACTION [None]
  - DRUG LEVEL INCREASED [None]
  - DYSPNOEA [None]
  - ELECTROLYTE IMBALANCE [None]
  - GASTRIC ULCER [None]
  - INCISIONAL DRAINAGE [None]
  - INTERSTITIAL LUNG DISEASE [None]
  - LUNG DISORDER [None]
  - NUCLEAR MAGNETIC RESONANCE IMAGING BRAIN ABNORMAL [None]
  - PNEUMONIA ASPERGILLUS [None]
  - PNEUMOTHORAX [None]
  - PUPILLARY LIGHT REFLEX TESTS ABNORMAL [None]
  - RASH [None]
  - REVERSIBLE POSTERIOR LEUKOENCEPHALOPATHY SYNDROME [None]
  - URINARY INCONTINENCE [None]
  - VOMITING [None]
